FAERS Safety Report 8143711-7 (Version None)
Quarter: 2012Q1

REPORT INFORMATION
  Report Type: 
  Country: None (occurrence: None)
  Receive Date: 20120217
  Receipt Date: 20120210
  Transmission Date: 20120608
  Serious: Yes (Other)
  Sender: FDA-Public Use
  Company Number: US-ASTELLAS-2012US001731

PATIENT

DRUGS (2)
  1. DILANTIN [Interacting]
     Indication: CONVULSION
     Dosage: UNK UNK, UNKNOWN/D
     Route: 065
  2. TARCEVA [Suspect]
     Indication: METASTATIC CARCINOID TUMOUR
     Dosage: UNKNOWN/D
     Route: 048

REACTIONS (2)
  - CONVULSION [None]
  - DRUG INTERACTION [None]
